FAERS Safety Report 9809268 (Version 2)
Quarter: 2014Q1

REPORT INFORMATION
  Report Type: Spontaneous
  Country: US (occurrence: US)
  Receive Date: 20140110
  Receipt Date: 20140117
  Transmission Date: 20141002
  Serious: Yes (Other)
  Sender: FDA-Public Use
  Company Number: US-ABBVIE-14P-163-1187812-00

PATIENT
  Age: 47 Year
  Sex: Female
  Weight: 69.46 kg

DRUGS (9)
  1. HUMIRA [Suspect]
     Indication: RHEUMATOID ARTHRITIS
     Route: 058
     Dates: start: 2009, end: 2011
  2. HUMIRA [Suspect]
     Indication: INFLAMMATORY BOWEL DISEASE
     Route: 058
     Dates: start: 2012
  3. METHOTREXATE [Concomitant]
     Indication: RHEUMATOID ARTHRITIS
     Dosage: MANY YEARS
     Dates: start: 2012
  4. PREDNISONE [Concomitant]
     Indication: RHEUMATOID ARTHRITIS
     Dosage: ON AND OFF FOR YEARS
  5. PREDNISONE [Concomitant]
     Indication: INFLAMMATORY BOWEL DISEASE
  6. TRIAMCINOLONE [Concomitant]
     Indication: PSORIASIS
  7. CIPRO [Concomitant]
     Indication: INFLAMMATORY BOWEL DISEASE
  8. IBUPROFEN [Concomitant]
     Indication: PRODUCT USED FOR UNKNOWN INDICATION
  9. FLAGYL [Concomitant]
     Indication: INFLAMMATORY BOWEL DISEASE

REACTIONS (5)
  - Lung neoplasm malignant [Not Recovered/Not Resolved]
  - Psoriasis [Unknown]
  - Crohn^s disease [Unknown]
  - Tuberculin test positive [Not Recovered/Not Resolved]
  - Drug ineffective [Unknown]
